FAERS Safety Report 4727202-9 (Version None)
Quarter: 2005Q3

REPORT INFORMATION
  Report Type: 
  Country: None (occurrence: None)
  Receive Date: 20050726
  Receipt Date: 20050726
  Transmission Date: 20060218
  Serious: Yes (Hospitalization)
  Sender: FDA-Public Use
  Company Number: None

PATIENT
  Age: 71 Year
  Sex: Male
  Weight: 51.7 kg

DRUGS (3)
  1. HYDROCODONE BITARTRATE + ACETAMINOPHEN [Suspect]
  2. VERAPAMIL [Concomitant]
  3. LORAZEPAM [Concomitant]

REACTIONS (2)
  - CONFUSIONAL STATE [None]
  - SOMNOLENCE [None]
